FAERS Safety Report 10301204 (Version 3)
Quarter: 2014Q3

REPORT INFORMATION
  Report Type: Spontaneous
  Country: IT (occurrence: IT)
  Receive Date: 20140714
  Receipt Date: 20140731
  Transmission Date: 20150326
  Serious: Yes (Hospitalization)
  Sender: FDA-Public Use
  Company Number: IT-PFIZER INC-2014157878

PATIENT
  Age: 78 Year
  Sex: Female

DRUGS (3)
  1. AMIODARONE HCL [Suspect]
     Active Substance: AMIODARONE HYDROCHLORIDE
     Dosage: UNK
     Route: 065
  2. GLUCOSE [Concomitant]
     Active Substance: DEXTROSE
     Dosage: 8 VIALS OF AMIODARONE HYDROCHLORIDE IN GLUCOSE SOLUTION (5%) AT THE RATE OF 24 ML/H
     Dates: start: 20140601, end: 20140601
  3. CORDARONE [Suspect]
     Active Substance: AMIODARONE HYDROCHLORIDE
     Indication: ATRIAL FIBRILLATION
     Dosage: 150MG/3 ML PHIALS (8 VIALS OF AMIODARONE IN GLUCOSE SOLUTION (5%) AT RATE OF 24 ML/H)
     Route: 041
     Dates: start: 20140601, end: 20140601

REACTIONS (2)
  - Paraesthesia [Recovered/Resolved]
  - Back pain [Recovered/Resolved]

NARRATIVE: CASE EVENT DATE: 20140601
